FAERS Safety Report 4406739-6 (Version None)
Quarter: 2004Q3

REPORT INFORMATION
  Report Type: 
  Country: None (occurrence: None)
  Receive Date: 20040715
  Receipt Date: 20040708
  Transmission Date: 20050211
  Serious: Yes (Hospitalization)
  Sender: FDA-Public Use
  Company Number: STA-AE-04-MTX-300

PATIENT
  Age: 73 Year
  Sex: Female

DRUGS (8)
  1. METHOTREXATE [Suspect]
     Indication: RHEUMATOID ARTHRITIS
     Dosage: 12.5 MG 1X PER 1WK, ORAL
     Route: 048
  2. ENBREL [Suspect]
     Indication: RHEUMATOID ARTHRITIS
     Dosage: POWDER FOR SOLUTION FOR INJECTION 25 MGD AT AN UNSPECIFIED DOSAGE INTERVAL
     Dates: start: 20030305
  3. LASIX RETARD (FUROSEMIDE) [Concomitant]
  4. FOLACIN (CALCIUM PHOSPHATE/FOLIC ACID) [Concomitant]
  5. ACETAMINOPHEN [Concomitant]
  6. KILOGEST (ESTRADIOL/NORTHISTERONE ACETATE) [Concomitant]
  7. DEXOFEN (DEXTROPROPOXYPHENE NAPSILATE) [Concomitant]
  8. CALCHICHEW (CALCIUM CARBONATE) [Concomitant]

REACTIONS (1)
  - ARTHRITIS BACTERIAL [None]
